FAERS Safety Report 7354832-0 (Version None)
Quarter: 2011Q1

REPORT INFORMATION
  Report Type: 
  Country: None (occurrence: None)
  Receive Date: 20110316
  Receipt Date: 20110304
  Transmission Date: 20110831
  Serious: No
  Sender: FDA-Public Use
  Company Number: GB-ASTRAZENECA-2011SE07773

PATIENT
  Age: 36 Year
  Sex: Female

DRUGS (19)
  1. CYCLIZINE [Concomitant]
     Indication: NAUSEA
     Route: 048
     Dates: start: 20110111
  2. SEROQUEL [Suspect]
     Route: 048
     Dates: start: 20101229
  3. NITRAZEPAM [Concomitant]
     Indication: INSOMNIA
     Route: 048
  4. VITAMIN B CO STRONG [Concomitant]
     Indication: MEDICAL DIET
     Route: 048
     Dates: start: 20101223
  5. DOMPERIDONE [Concomitant]
     Indication: VOMITING
     Route: 048
     Dates: start: 20101216
  6. SEROQUEL [Suspect]
     Indication: BORDERLINE PERSONALITY DISORDER
     Route: 048
     Dates: start: 20101206
  7. SEROQUEL [Suspect]
     Dosage: 600 MG + 25 MG AS REQUIRED
     Route: 048
     Dates: start: 20110119
  8. MIRTAZAPINE [Concomitant]
     Indication: DEPRESSED MOOD
     Route: 048
     Dates: start: 20110112
  9. LANSOPRAZOLE [Concomitant]
     Indication: HIATUS HERNIA
     Route: 048
  10. SEROQUEL [Suspect]
     Route: 048
  11. DIAZEPAM [Concomitant]
     Indication: AGITATION
     Route: 048
     Dates: start: 20110118
  12. DOMPERIDONE [Concomitant]
     Indication: NAUSEA
     Route: 048
     Dates: start: 20101216
  13. FLUPENTHIXOL DECANOATE [Concomitant]
     Indication: BORDERLINE PERSONALITY DISORDER
     Route: 030
     Dates: start: 20101115, end: 20110117
  14. SEROQUEL [Suspect]
     Route: 048
     Dates: start: 20101216, end: 20101229
  15. PEPTAC [Concomitant]
     Indication: DYSPEPSIA
     Route: 048
  16. MOVIPREP [Concomitant]
     Indication: CONSTIPATION
     Route: 048
     Dates: start: 20110119
  17. THIAMINE [Concomitant]
     Indication: MEDICAL DIET
     Route: 048
     Dates: start: 20101223
  18. SERETIDE ACCUHALER [Concomitant]
     Indication: ASTHMA
     Route: 055
  19. FORTISIPS [Concomitant]
     Indication: MEDICAL DIET
     Route: 048
     Dates: start: 20110104

REACTIONS (1)
  - NEUTROPENIA [None]
